FAERS Safety Report 6819000-7 (Version None)
Quarter: 2010Q3

REPORT INFORMATION
  Report Type: 
  Country: None (occurrence: None)
  Receive Date: 20100701
  Receipt Date: 20100629
  Transmission Date: 20110219
  Serious: Yes (Other)
  Sender: FDA-Public Use
  Company Number: 2010SP018877

PATIENT
  Age: 14 Year
  Sex: Male
  Weight: 39 kg

DRUGS (3)
  1. DESLORATADINE [Suspect]
     Indication: RHINITIS PERENNIAL
     Dosage: 1 DF; QD; PO
     Route: 048
     Dates: start: 20100101, end: 20100315
  2. SERETIDE [Concomitant]
  3. NASONEX [Concomitant]

REACTIONS (4)
  - ABNORMAL BEHAVIOUR [None]
  - AGGRESSION [None]
  - HALLUCINATION [None]
  - INCOHERENT [None]
